FAERS Safety Report 4835338-7 (Version None)
Quarter: 2005Q4

REPORT INFORMATION
  Report Type: 
  Country: None (occurrence: None)
  Receive Date: 20051122
  Receipt Date: 20050915
  Transmission Date: 20060501
  Serious: Yes (Hospitalization, Disabling)
  Sender: FDA-Public Use
  Company Number: US-MERCK-0509USA02433

PATIENT
  Age: 49 Year
  Sex: Female
  Weight: 78 kg

DRUGS (8)
  1. VIOXX [Suspect]
     Indication: BACK PAIN
     Route: 048
     Dates: start: 20001101
  2. VIOXX [Suspect]
     Route: 048
     Dates: end: 20020904
  3. VIOXX [Suspect]
     Indication: INTERVERTEBRAL DISC DEGENERATION
     Route: 048
     Dates: start: 20001101
  4. VIOXX [Suspect]
     Route: 048
     Dates: end: 20020904
  5. CALAN [Concomitant]
     Indication: ANGINA PECTORIS
     Route: 065
     Dates: start: 19940101
  6. DYAZIDE [Concomitant]
     Indication: HYPERTENSION
     Route: 065
     Dates: start: 19950101
  7. DYAZIDE [Concomitant]
     Indication: OEDEMA
     Route: 065
     Dates: start: 19950101
  8. MONOPRIL [Concomitant]
     Indication: HYPERTENSION
     Route: 065
     Dates: start: 19990101

REACTIONS (5)
  - ACCIDENT AT WORK [None]
  - AGEUSIA [None]
  - CEREBROVASCULAR ACCIDENT [None]
  - DRY MOUTH [None]
  - VERTEBRAL INJURY [None]
